FAERS Safety Report 4630292-5 (Version None)
Quarter: 2005Q2

REPORT INFORMATION
  Report Type: 
  Country: None (occurrence: None)
  Receive Date: 20050408
  Receipt Date: 20050214
  Transmission Date: 20051028
  Serious: Yes (Other)
  Sender: FDA-Public Use
  Company Number: 200513071GDDC

PATIENT
  Sex: Male
  Weight: 3.15 kg

DRUGS (3)
  1. CLEXANE [Suspect]
     Dosage: DOSE: 60-80
     Dates: start: 20041102, end: 20041128
  2. TINZAPARIN [Concomitant]
     Dates: start: 20041128, end: 20041203
  3. LEPIRUDIN [Concomitant]
     Dates: start: 20041207, end: 20050119

REACTIONS (4)
  - APGAR SCORE LOW [None]
  - BLOOD PH DECREASED [None]
  - DRUG EXPOSURE DURING PREGNANCY [None]
  - GRUNTING [None]
